FAERS Safety Report 25256478 (Version 1)
Quarter: 2025Q2

REPORT INFORMATION
  Report Type: Spontaneous
  Country: US (occurrence: US)
  Receive Date: 20250430
  Receipt Date: 20250430
  Transmission Date: 20250717
  Serious: Yes (Other)
  Sender: BLUEPRINT MEDICINES
  Company Number: US-Blueprint Medicines Corporation-2025-AER-00860

PATIENT
  Age: 79 Year
  Sex: Male

DRUGS (1)
  1. AYVAKIT [Suspect]
     Active Substance: AVAPRITINIB
     Indication: Advanced systemic mastocytosis
     Route: 065
     Dates: start: 20241116

REACTIONS (14)
  - Haematemesis [Unknown]
  - Haemoglobin decreased [Unknown]
  - Gastrointestinal ulcer haemorrhage [Unknown]
  - Vomiting projectile [Unknown]
  - Abdominal pain [Unknown]
  - Gastrooesophageal reflux disease [Unknown]
  - Weight decreased [Unknown]
  - Diarrhoea [Unknown]
  - Blood lactate dehydrogenase abnormal [Unknown]
  - Fatigue [Unknown]
  - Emotional distress [Unknown]
  - Quality of life decreased [Unknown]
  - Platelet count decreased [Unknown]
  - Drug ineffective [Unknown]

NARRATIVE: CASE EVENT DATE: 20250420
